FAERS Safety Report 19152046 (Version 2)
Quarter: 2021Q2

REPORT INFORMATION
  Report Type: Spontaneous
  Country: ES (occurrence: ES)
  Receive Date: 20210419
  Receipt Date: 20210517
  Transmission Date: 20210717
  Serious: No
  Sender: FDA-Public Use
  Company Number: NVSC2020ES289160

PATIENT
  Age: 51 Year
  Sex: Female

DRUGS (6)
  1. ABEMACICLIB [Suspect]
     Active Substance: ABEMACICLIB
     Dosage: 100 MG
     Route: 048
  2. ABEMACICLIB [Suspect]
     Active Substance: ABEMACICLIB
     Dosage: 100 MG
     Route: 048
     Dates: start: 20201020
  3. FORTASEC [Suspect]
     Active Substance: LOPERAMIDE HYDROCHLORIDE
     Indication: DIARRHOEA
     Dosage: UNK
     Route: 065
     Dates: start: 20201108
  4. FULVESTRANT. [Suspect]
     Active Substance: FULVESTRANT
     Indication: BREAST CANCER METASTATIC
     Dosage: UNK, CYCLIC (EVERY 15 DAYS)
     Route: 065
     Dates: start: 20200921
  5. ABEMACICLIB [Suspect]
     Active Substance: ABEMACICLIB
     Indication: BREAST CANCER METASTATIC
     Dosage: 50 MG
     Route: 048
     Dates: start: 20200922, end: 20201020
  6. ABEMACICLIB [Suspect]
     Active Substance: ABEMACICLIB
     Dosage: 50 MG
     Route: 048
     Dates: start: 20201202

REACTIONS (14)
  - Immunodeficiency [Recovered/Resolved]
  - Proctalgia [Recovering/Resolving]
  - Diarrhoea [Recovering/Resolving]
  - Gingival bleeding [Recovering/Resolving]
  - Stomatitis [Recovering/Resolving]
  - Tooth disorder [Recovering/Resolving]
  - Constipation [Recovered/Resolved]
  - Diarrhoea [Recovered/Resolved]
  - Oral infection [Recovering/Resolving]
  - Fatigue [Recovering/Resolving]
  - Noninfective gingivitis [Recovering/Resolving]
  - Fatigue [Recovering/Resolving]
  - Gingival swelling [Recovering/Resolving]
  - Blood pressure decreased [Recovering/Resolving]

NARRATIVE: CASE EVENT DATE: 20200923
